FAERS Safety Report 6964922-X (Version None)
Quarter: 2010Q3

REPORT INFORMATION
  Report Type: 
  Country: None (occurrence: None)
  Receive Date: 20100903
  Receipt Date: 20100825
  Transmission Date: 20110219
  Serious: Yes (Other)
  Sender: FDA-Public Use
  Company Number: US-ABBOTT-10P-163-0666061-00

PATIENT
  Sex: Female
  Weight: 60 kg

DRUGS (16)
  1. NIMBEX [Suspect]
     Indication: SICKLE CELL ANAEMIA WITH CRISIS
     Dosage: PER KG PT WT 60 KG 1.2 MG/0.6CC
     Route: 050
     Dates: start: 20100824, end: 20100824
  2. BENADRYL [Concomitant]
     Indication: PRODUCT USED FOR UNKNOWN INDICATION
     Dosage: IVP AS NEEDED
     Route: 040
  3. DEMEROL [Concomitant]
     Indication: PAIN
     Dosage: W/PHENERGAN 50/25 IVP AS NEEDED
     Route: 040
  4. PROPOFOL [Concomitant]
     Indication: MECHANICAL VENTILATION
     Dosage: CONTINUOUS DRIP SEDATION
     Route: 041
  5. FOLIC ACID [Concomitant]
     Indication: PRODUCT USED FOR UNKNOWN INDICATION
     Route: 050
  6. HALOPERIDOL [Concomitant]
     Indication: AGGRESSION
     Dosage: IVP Q 4 AS NEEDED
     Route: 040
  7. LOVENOX [Concomitant]
     Indication: PROPHYLAXIS
     Route: 058
  8. LEVOPHED BITARTRAT [Concomitant]
     Indication: HYPOTENSION
     Dosage: TITRATED CONTINUOUS DRIP
     Route: 041
  9. MORPHINE [Concomitant]
     Indication: BREAKTHROUGH PAIN
     Dosage: Q1HR AS REQUIRED IVP
     Route: 040
  10. ZITHROMAX [Concomitant]
     Indication: PNEUMONIA
     Route: 040
     Dates: start: 20100824
  11. NEXIUM [Concomitant]
     Indication: PRODUCT USED FOR UNKNOWN INDICATION
     Route: 040
  12. ACETAMINOPHEN [Concomitant]
     Indication: PRODUCT USED FOR UNKNOWN INDICATION
     Dosage: 4 IN 1 D AS NEEDED
     Route: 048
     Dates: end: 20100824
  13. XOPENEX [Concomitant]
     Indication: PNEUMONIA
     Dosage: 4 IN 1 D VIA NEBULIZER
     Route: 055
  14. ZOFRAN [Concomitant]
     Indication: PRODUCT USED FOR UNKNOWN INDICATION
     Dosage: 3 IN 1 D AS NEEDED
     Route: 040
  15. ZOSYN [Concomitant]
     Indication: PNEUMONIA
     Route: 040
  16. PHENERGAN [Concomitant]
     Indication: PAIN
     Dosage: W/DEMEROL 50 AS NEEDED
     Route: 040

REACTIONS (1)
  - CARDIAC ARREST [None]
